FAERS Safety Report 10154902 (Version 1)
Quarter: 2014Q2

REPORT INFORMATION
  Report Type: Spontaneous
  Country: US (occurrence: US)
  Receive Date: 20140506
  Receipt Date: 20140506
  Transmission Date: 20141212
  Serious: Yes (Other)
  Sender: FDA-Public Use
  Company Number: US-SHIRE-US201401708

PATIENT
  Age: 13 Year
  Sex: Male

DRUGS (1)
  1. ELAPRASE [Suspect]
     Indication: PRODUCT USED FOR UNKNOWN INDICATION
     Dosage: UNK, UNKNOWN
     Route: 041

REACTIONS (3)
  - Pyrexia [Recovering/Resolving]
  - Infusion related reaction [Recovering/Resolving]
  - Nasopharyngitis [Unknown]
